FAERS Safety Report 8759603 (Version 2)
Quarter: 2013Q4

REPORT INFORMATION
  Report Type: Spontaneous
  Country: US (occurrence: US)
  Receive Date: 20120829
  Receipt Date: 20131101
  Transmission Date: 20140711
  Serious: No
  Sender: FDA-Public Use
  Company Number: US-009507513-1208USA007924

PATIENT
  Sex: Male

DRUGS (1)
  1. MIRALAX [Suspect]
     Indication: FAECALOMA
     Dosage: UNK, QD
     Route: 048
     Dates: start: 20120725

REACTIONS (1)
  - Drug ineffective [Unknown]
